FAERS Safety Report 16297562 (Version 1)
Quarter: 2019Q2

REPORT INFORMATION
  Report Type: Spontaneous
  Country: US (occurrence: US)
  Receive Date: 20190510
  Receipt Date: 20190510
  Transmission Date: 20190711
  Serious: No
  Sender: FDA-Public Use
  Company Number: US-BIOGEN-2019BI00733148

PATIENT

DRUGS (1)
  1. AVONEX [Suspect]
     Active Substance: INTERFERON BETA-1A
     Indication: MULTIPLE SCLEROSIS
     Route: 030
     Dates: start: 19980101

REACTIONS (6)
  - Product dose omission [Unknown]
  - Fall [Recovered/Resolved]
  - Joint dislocation [Unknown]
  - Bradykinesia [Unknown]
  - Musculoskeletal disorder [Unknown]
  - Vision blurred [Unknown]
